FAERS Safety Report 21505022 (Version 3)
Quarter: 2022Q4

REPORT INFORMATION
  Report Type: Spontaneous
  Country: CA (occurrence: CA)
  Receive Date: 20221025
  Receipt Date: 20221226
  Transmission Date: 20230112
  Serious: Yes (Other)
  Sender: FDA-Public Use
  Company Number: CA-CELLTRION INC.-2022CA017031

PATIENT

DRUGS (9)
  1. INFLECTRA [Suspect]
     Active Substance: INFLIXIMAB-DYYB
     Indication: Colitis ulcerative
     Dosage: 300 MG , INDUCTION AT Q 0, 2, 6 WEKS , EVERY 8 WEEKS
     Route: 042
     Dates: start: 20190114
  2. INFLECTRA [Suspect]
     Active Substance: INFLIXIMAB-DYYB
     Dosage: 300 MG , Q 0, 2, 6 WEKS ,THEN EVERY 8 WEEKS
     Route: 042
     Dates: start: 20220815
  3. INFLECTRA [Suspect]
     Active Substance: INFLIXIMAB-DYYB
     Dosage: 300 MG ,Q 0, 2, 6 WEKS ,THEN EVERY 8 WEEKS
     Route: 042
     Dates: start: 20221021
  4. INFLECTRA [Suspect]
     Active Substance: INFLIXIMAB-DYYB
     Dosage: 300 MG ,Q 0, 2, 6 WEKS ,THEN EVERY 8 WEEKS
     Route: 042
     Dates: start: 20221021
  5. INFLECTRA [Suspect]
     Active Substance: INFLIXIMAB-DYYB
     Dosage: 300 MG ,Q 0, 2, 6 WEKS ,THEN EVERY 8 WEEKS
     Route: 042
     Dates: start: 20221216
  6. DALTEPARIN [Concomitant]
     Active Substance: DALTEPARIN
     Dosage: 1 DF, 1X/DAY, DOSE: 5000 UNITSUNKNOWN IF ONGOING
     Route: 058
     Dates: start: 201901
  7. HYDROCORTISONE [Concomitant]
     Active Substance: HYDROCORTISONE
     Indication: Haemorrhoids
     Dosage: 25 MG, 2X/DAY
     Route: 054
  8. METHYLPREDNISOLONE [Concomitant]
     Active Substance: METHYLPREDNISOLONE
     Dosage: 30 MG, 2X/DAY, FOR 7 DAYS, THEN 5 DAYS. UNKNOWN IF ONGOING
     Route: 065
     Dates: start: 201901
  9. PROCTOSEDYL [Concomitant]
     Active Substance: DIBUCAINE HYDROCHLORIDE\HYDROCORTISONE
     Dosage: 1 DF, 2X/DAY
     Route: 054

REACTIONS (5)
  - Ear infection bacterial [Not Recovered/Not Resolved]
  - Ear pain [Unknown]
  - Ear infection fungal [Unknown]
  - Inappropriate schedule of product administration [Unknown]
  - Condition aggravated [Recovered/Resolved]

NARRATIVE: CASE EVENT DATE: 20220101
